FAERS Safety Report 5287889-1 (Version None)
Quarter: 2007Q1

REPORT INFORMATION
  Report Type: 
  Country: None (occurrence: None)
  Receive Date: 20070330
  Receipt Date: 20070315
  Transmission Date: 20070707
  Serious: Yes (Other)
  Sender: FDA-Public Use
  Company Number: STI-2007-00168

PATIENT
  Age: 36 Year
  Sex: Female

DRUGS (1)
  1. DUAC [Suspect]
     Dosage: TOPICAL
     Route: 061
     Dates: start: 20061201, end: 20061201

REACTIONS (2)
  - CROHN'S DISEASE [None]
  - DISEASE RECURRENCE [None]
